FAERS Safety Report 8936147 (Version 2)
Quarter: 2013Q1

REPORT INFORMATION
  Report Type: Spontaneous
  Country: US (occurrence: US)
  Receive Date: 20121130
  Receipt Date: 20130114
  Transmission Date: 20140127
  Serious: Yes (Other)
  Sender: FDA-Public Use
  Company Number: US-BIOGENIDEC-2012BI054873

PATIENT
  Age: 55 Year
  Sex: Male

DRUGS (17)
  1. TYSABRI [Suspect]
     Indication: MULTIPLE SCLEROSIS
     Route: 042
     Dates: start: 20100420, end: 20121010
  2. ELAVIL [Concomitant]
     Route: 048
  3. PROZAC [Concomitant]
     Route: 048
  4. NEURONTIN [Concomitant]
     Route: 048
  5. DILAUDID [Concomitant]
     Route: 048
  6. KEPPRA [Concomitant]
     Route: 048
  7. LEVOTHYROXINE [Concomitant]
     Route: 048
  8. MEGESTROL ACETATE [Concomitant]
     Route: 048
  9. PROVIGIL [Concomitant]
     Route: 048
  10. MS CONTIN [Concomitant]
     Route: 048
  11. MULTIVITAMIN WITH MINERALS [Concomitant]
     Route: 048
  12. DILANTIN [Concomitant]
     Route: 048
  13. DILANTIN [Concomitant]
     Route: 048
  14. MIRAPEX [Concomitant]
     Route: 048
  15. ZANAFLEX [Concomitant]
     Route: 048
  16. ZANAFLEX [Concomitant]
     Route: 048
  17. ACTIGALL [Concomitant]
     Route: 048

REACTIONS (5)
  - Squamous cell carcinoma of lung [Not Recovered/Not Resolved]
  - Emphysema [Unknown]
  - Rib fracture [Unknown]
  - Arteriosclerosis coronary artery [Unknown]
  - Pneumonia [Unknown]
